FAERS Safety Report 19868718 (Version 2)
Quarter: 2021Q3

REPORT INFORMATION
  Report Type: Report from Study
  Country: None (occurrence: HU)
  Receive Date: 20210921
  Receipt Date: 20210928
  Transmission Date: 20211014
  Serious: Yes (Other)
  Sender: FDA-Public Use
  Company Number: HU-ABBVIE-21K-076-4085039-00

PATIENT
  Sex: Female

DRUGS (9)
  1. MEFORAL [Concomitant]
     Active Substance: METFORMIN HYDROCHLORIDE
     Indication: TYPE 2 DIABETES MELLITUS
     Dosage: 1 TABLET AT MORNING; HALF TABLET AT NOON
     Route: 048
  2. FRONTIN [Concomitant]
     Active Substance: ALPRAZOLAM
     Indication: PRODUCT USED FOR UNKNOWN INDICATION
     Dosage: MORNING: 0.25 MG; NOON: 0.25 MG; EVENING: 0.5 MG
     Route: 048
  3. QUENTIAX [Concomitant]
     Active Substance: QUETIAPINE FUMARATE
     Indication: DEPRESSION
     Dosage: 25 MG IN THE EVENING
     Route: 048
     Dates: start: 201605
  4. DUODOPA [Suspect]
     Active Substance: CARBIDOPA\LEVODOPA
  5. ASPIRIN PROTECT [Concomitant]
     Active Substance: ASPIRIN
     Indication: PROPHYLAXIS
     Route: 048
  6. CLOPIDOGREL [Concomitant]
     Active Substance: CLOPIDOGREL BISULFATE
     Indication: PROPHYLAXIS
     Dosage: 1 TABLET IN THE MORNING
     Route: 048
  7. NEVIBOLOL [Concomitant]
     Active Substance: NEBIVOLOL
     Indication: HYPERTENSION
     Dosage: 5 MG IN THE MORNING
     Route: 048
  8. APADEX [Concomitant]
     Indication: HYPERTENSION
     Dosage: 1.5 MG IN THE MORNING
     Route: 048
  9. DUODOPA [Suspect]
     Active Substance: CARBIDOPA\LEVODOPA
     Indication: PARKINSON^S DISEASE
     Dosage: MORNING DOSE: 5.0 ML; CONTINUOUS DOSE: 1.1 ML/HOUR; EVENING DOSE: 1.5 ML
     Route: 050
     Dates: start: 20140603

REACTIONS (4)
  - Device use issue [Not Recovered/Not Resolved]
  - Hallucination [Not Recovered/Not Resolved]
  - Embedded device [Not Recovered/Not Resolved]
  - Depression [Unknown]

NARRATIVE: CASE EVENT DATE: 2016
